FAERS Safety Report 20954717 (Version 1)
Quarter: 2022Q2

REPORT INFORMATION
  Report Type: Other
  Country: US (occurrence: None)
  Receive Date: 20220614
  Receipt Date: 20220614
  Transmission Date: 20220721
  Serious: Yes (Hospitalization, Other)
  Sender: FDA-Public Use
  Company Number: US-Square-000073

PATIENT
  Age: 56 Year
  Sex: Male

DRUGS (6)
  1. ARIPIPRAZOLE [Suspect]
     Active Substance: ARIPIPRAZOLE
     Indication: Psychomotor skills impaired
     Dosage: 5 MG DAILY
  2. BENZODIAZEPINE [Concomitant]
     Active Substance: BENZODIAZEPINE
     Indication: Alcohol withdrawal syndrome
  3. THIAMINE [Concomitant]
     Active Substance: THIAMINE
     Indication: Anaemia macrocytic
  4. FOLATE SODIUM [Concomitant]
     Active Substance: FOLATE SODIUM
     Indication: Anaemia macrocytic
  5. ARIPIPRAZOLE [Suspect]
     Active Substance: ARIPIPRAZOLE
     Indication: Psychomotor skills impaired
     Dosage: 10 MG DAILY
  6. ARIPIPRAZOLE [Suspect]
     Active Substance: ARIPIPRAZOLE
     Indication: Psychomotor skills impaired
     Dosage: 5 MG DAILY

REACTIONS (5)
  - Hypothermia [Recovered/Resolved]
  - Off label use [Unknown]
  - Hypothyroidism [Unknown]
  - Hallucination, visual [Unknown]
  - Hyporeflexia [Unknown]
